FAERS Safety Report 14498133 (Version 2)
Quarter: 2018Q3

REPORT INFORMATION
  Report Type: Report from Study
  Country: US (occurrence: US)
  Receive Date: 20180207
  Receipt Date: 20180822
  Transmission Date: 20181010
  Serious: Yes (Hospitalization)
  Sender: FDA-Public Use
  Company Number: US-ACTELION-A-US2017-152980

PATIENT
  Age: 72 Year
  Sex: Female
  Weight: 85.26 kg

DRUGS (4)
  1. OPSUMIT [Suspect]
     Active Substance: MACITENTAN
     Indication: PULMONARY ARTERIAL HYPERTENSION
     Dosage: 10 MG, QD
     Route: 048
  2. DILTIAZEM. [Concomitant]
     Active Substance: DILTIAZEM
  3. ADEMPAS [Concomitant]
     Active Substance: RIOCIGUAT
  4. AMLODIPINE [Concomitant]
     Active Substance: AMLODIPINE BESYLATE

REACTIONS (20)
  - Drug dose omission [Unknown]
  - Nausea [Unknown]
  - Dyspnoea [Unknown]
  - Asthenia [Unknown]
  - Fatigue [Unknown]
  - Somnolence [Unknown]
  - Vomiting [Unknown]
  - Weight decreased [Unknown]
  - Colonoscopy [Unknown]
  - Diarrhoea [Unknown]
  - Dyspepsia [Unknown]
  - Hernia [Unknown]
  - Decreased appetite [Unknown]
  - Drug hypersensitivity [Recovered/Resolved]
  - Dyspnoea exertional [Unknown]
  - Back pain [Recovering/Resolving]
  - Gastrooesophageal reflux disease [Unknown]
  - Headache [Unknown]
  - Lip swelling [Recovered/Resolved]
  - Retching [Unknown]

NARRATIVE: CASE EVENT DATE: 201705
